FAERS Safety Report 8176205-3 (Version None)
Quarter: 2012Q1

REPORT INFORMATION
  Report Type: 
  Country: None (occurrence: None)
  Receive Date: 20120301
  Receipt Date: 20111219
  Transmission Date: 20120608
  Serious: Yes (Other)
  Sender: FDA-Public Use
  Company Number: CA-JNJFOC-20120110866

PATIENT
  Sex: Female
  Weight: 73 kg

DRUGS (6)
  1. PRAMIPEXOLE DIHYDROCHLORIDE [Concomitant]
     Route: 065
  2. OXYCODONE HCL [Concomitant]
     Route: 065
  3. HYDROCHLOROTHIAZIDE [Concomitant]
     Route: 065
  4. RAMIPRIL [Concomitant]
     Route: 065
  5. REMICADE [Suspect]
     Indication: RHEUMATOID ARTHRITIS
     Dosage: EVERY 8-9 WEEKS
     Route: 042
     Dates: start: 20020625
  6. METHOTREXATE [Concomitant]
     Route: 065

REACTIONS (1)
  - ASTHMA [None]
